FAERS Safety Report 5845958-9 (Version None)
Quarter: 2008Q3

REPORT INFORMATION
  Report Type: 
  Country: None (occurrence: None)
  Receive Date: 20080814
  Receipt Date: 20080806
  Transmission Date: 20090109
  Serious: Yes (Other)
  Sender: FDA-Public Use
  Company Number: US-PFIZER INC-2008066062

PATIENT
  Sex: Female
  Weight: 66.363 kg

DRUGS (11)
  1. DETROL LA [Suspect]
     Indication: STRESS URINARY INCONTINENCE
  2. DETROL LA [Suspect]
  3. LOTREL [Concomitant]
  4. ESTRACE [Concomitant]
  5. IMIPRAMINE [Concomitant]
  6. FOSAMAX [Concomitant]
  7. TEGRETOL [Concomitant]
  8. SYMBICORT [Concomitant]
  9. PREVACID [Concomitant]
  10. ASTELIN [Concomitant]
  11. MINOCYCLINE HCL [Concomitant]

REACTIONS (1)
  - TRANSIENT ISCHAEMIC ATTACK [None]
